FAERS Safety Report 10956252 (Version 3)
Quarter: 2018Q1

REPORT INFORMATION
  Report Type: Spontaneous
  Country: US (occurrence: US)
  Receive Date: 20150326
  Receipt Date: 20180319
  Transmission Date: 20180508
  Serious: Yes (Hospitalization, Other)
  Sender: FDA-Public Use
  Company Number: US-ELI_LILLY_AND_COMPANY-US201503006442

PATIENT
  Age: 49 Year
  Sex: Male
  Weight: 80.73 kg

DRUGS (6)
  1. DESYREL [Concomitant]
     Active Substance: TRAZODONE HYDROCHLORIDE
     Dosage: UNK, UNKNOWN
     Route: 065
  2. COREG [Concomitant]
     Active Substance: CARVEDILOL
     Dosage: 12.5 MG, BID
     Route: 065
  3. PRAVACHOL [Concomitant]
     Active Substance: PRAVASTATIN SODIUM
     Dosage: 40 MG, UNK
     Route: 065
  4. CYMBALTA [Concomitant]
     Active Substance: DULOXETINE HYDROCHLORIDE
     Dosage: UNK, UNKNOWN
     Route: 065
  5. AXIRON [Suspect]
     Active Substance: TESTOSTERONE
     Indication: BLOOD TESTOSTERONE DECREASED
     Dosage: UNK, UNKNOWN
     Route: 061
     Dates: start: 20110911, end: 20120912
  6. PROVENTIL [Concomitant]
     Active Substance: ALBUTEROL
     Dosage: UNK, UNKNOWN
     Route: 055

REACTIONS (13)
  - Myocardial infarction [Unknown]
  - Palpitations [Unknown]
  - Pulmonary embolism [Unknown]
  - Ventricular tachycardia [Unknown]
  - Cardiovascular disorder [Unknown]
  - Stress [Unknown]
  - Angina pectoris [Unknown]
  - Fear [Unknown]
  - Coronary artery stenosis [Unknown]
  - Thrombosis [Unknown]
  - Depression [Unknown]
  - Amnesia [Unknown]
  - Mobility decreased [Unknown]

NARRATIVE: CASE EVENT DATE: 20121021
